FAERS Safety Report 6288320-X (Version None)
Quarter: 2009Q3

REPORT INFORMATION
  Report Type: 
  Country: None (occurrence: None)
  Receive Date: 20090729
  Receipt Date: 20090721
  Transmission Date: 20100115
  Serious: Yes (Life-Threatening, Hospitalization)
  Sender: FDA-Public Use
  Company Number: US-PFIZER INC-2009243043

PATIENT
  Sex: Female
  Weight: 89.342 kg

DRUGS (14)
  1. BLINDED *NO SUBJECT DRUG [Suspect]
     Indication: PARTIAL SEIZURES
     Dosage: UNK
     Route: 048
     Dates: start: 20090609, end: 20090719
  2. BLINDED PREGABALIN [Suspect]
     Indication: PARTIAL SEIZURES
     Dosage: UNK
     Route: 048
     Dates: start: 20090609, end: 20090719
  3. ZYRTEC [Concomitant]
     Dosage: UNK
     Route: 048
  4. DEPAKOTE [Concomitant]
     Dosage: UNK
     Route: 048
  5. VASOTEC [Concomitant]
     Route: 048
  6. METOPROLOL [Concomitant]
     Route: 048
  7. CYMBALTA [Concomitant]
     Route: 048
  8. FOLIC ACID [Concomitant]
     Route: 048
  9. MULTI-VITAMINS [Concomitant]
     Route: 048
  10. VITAMIN D [Concomitant]
     Route: 048
  11. ASCORBIC ACID [Concomitant]
     Route: 048
  12. IRON [Concomitant]
     Route: 048
  13. VISTARIL [Concomitant]
     Dosage: UNK
     Route: 048
     Dates: start: 20090402
  14. FIORINAL [Concomitant]
     Dosage: UNK
     Route: 048
     Dates: start: 19690101

REACTIONS (1)
  - GRAND MAL CONVULSION [None]
